FAERS Safety Report 24570668 (Version 1)
Quarter: 2024Q4

REPORT INFORMATION
  Report Type: Spontaneous
  Country: CA (occurrence: CA)
  Receive Date: 20241031
  Receipt Date: 20241031
  Transmission Date: 20250114
  Serious: Yes (Other)
  Sender: STRIDES
  Company Number: CA-STRIDES ARCOLAB LIMITED-2024SP014000

PATIENT

DRUGS (8)
  1. PREDNISOLONE [Suspect]
     Active Substance: PREDNISOLONE
     Indication: Product used for unknown indication
     Dosage: UNK (THE PATIENT RECEIVED PREDNISONE FOR VASO-OCCLUSIVE EVENT, DELAYED HAEMOLYTIC TRANSFUSION REACTI
     Route: 064
  2. HUMAN IMMUNOGLOBULIN G [Suspect]
     Active Substance: HUMAN IMMUNOGLOBULIN G
     Indication: Product used for unknown indication
     Dosage: UNK (THE PATIENT RECEIVED IV IMMUNE-GLOBULIN FOR DELAYED HAEMOLYTIC TRANSFUSION REACTION AND HYPERHA
     Route: 064
  3. ERYTHROPOIETIN [Suspect]
     Active Substance: ERYTHROPOIETIN
     Indication: Product used for unknown indication
     Dosage: UNK (THE PATIENT RECEIVED ERYTHROPOIETIN FOR DELAYED HAEMOLYTIC TRANSFUSION REACTION AND HYPERHAEMOL
     Route: 064
  4. ECULIZUMAB [Suspect]
     Active Substance: ECULIZUMAB
     Indication: Product used for unknown indication
     Dosage: UNK (THE PATIENT RECEIVED ECULIZUMAB FOR DELAYED HAEMOLYTIC TRANSFUSION REACTION AND HYPERHAEMOLYSIS
     Route: 064
  5. METHYLPREDNISOLONE [Suspect]
     Active Substance: METHYLPREDNISOLONE
     Indication: Product used for unknown indication
     Dosage: UNK (THE PATIENT RECEIVED METHYLPREDNISOLONE FOR DELAYED HAEMOLYTIC TRANSFUSION REACTION AND VASO-OC
     Route: 064
  6. HYDROMORPHONE [Suspect]
     Active Substance: HYDROMORPHONE
     Indication: Product used for unknown indication
     Dosage: UNK (THE PATIENT RECEIVED HYDROMORPHONE FOR RIB AND SHOULDER PAIN DURING PREGNANCY)
     Route: 064
  7. ACETAMINOPHEN [Suspect]
     Active Substance: ACETAMINOPHEN
     Indication: Product used for unknown indication
     Dosage: UNK (THE PATIENT RECEIVED PARACETAMOL FOR RIB AND SHOULDER PAIN DURING PREGNANCY)
     Route: 064
  8. BETAMETHASONE [Suspect]
     Active Substance: BETAMETHASONE
     Indication: Product used for unknown indication
     Dosage: UNK (THE PATIENT RECEIVED BETAMETHASONE AS MATERNAL THERAPY TO ENHANCE FETAL LUNG MATURITY DURING PR
     Route: 064

REACTIONS (3)
  - Premature baby [Unknown]
  - Low birth weight baby [Unknown]
  - Foetal exposure during pregnancy [Unknown]
